FAERS Safety Report 10161847 (Version 1)
Quarter: 2014Q2

REPORT INFORMATION
  Report Type: Spontaneous
  Country: CH (occurrence: CH)
  Receive Date: 20140509
  Receipt Date: 20140509
  Transmission Date: 20141212
  Serious: Yes (Life-Threatening, Hospitalization)
  Sender: FDA-Public Use
  Company Number: CH-JNJFOC-20140503032

PATIENT
  Age: 84 Year
  Sex: Male
  Weight: 84 kg

DRUGS (8)
  1. XARELTO [Suspect]
     Indication: CEREBROVASCULAR ACCIDENT PROPHYLAXIS
     Route: 048
     Dates: start: 20140203
  2. XARELTO [Suspect]
     Indication: CEREBROVASCULAR ACCIDENT PROPHYLAXIS
     Route: 048
     Dates: start: 2013, end: 20140129
  3. XARELTO [Suspect]
     Indication: ATRIAL FIBRILLATION
     Route: 048
     Dates: start: 2013, end: 20140129
  4. XARELTO [Suspect]
     Indication: ATRIAL FIBRILLATION
     Route: 048
     Dates: start: 20140203
  5. NEXIUM [Suspect]
     Indication: PROPHYLACTIC CHEMOTHERAPY
     Route: 048
  6. MULTAQ [Suspect]
     Indication: ATRIAL FIBRILLATION
     Route: 048
  7. DILTIAZEM [Suspect]
     Indication: ATRIAL FIBRILLATION
     Route: 048
  8. ALLOPURINOL [Concomitant]
     Indication: GOUT
     Route: 048

REACTIONS (7)
  - Diverticulum intestinal haemorrhagic [Recovered/Resolved]
  - Haemorrhagic anaemia [Recovered/Resolved]
  - Arterial haemorrhage [Recovered/Resolved]
  - Hypotension [Recovered/Resolved]
  - Colectomy [Recovered/Resolved]
  - Intestinal ischaemia [Recovered/Resolved]
  - Labelled drug-drug interaction medication error [Recovered/Resolved]
